FAERS Safety Report 6878121-3 (Version None)
Quarter: 2010Q2

REPORT INFORMATION
  Report Type: 
  Country: None (occurrence: None)
  Receive Date: 20100616
  Receipt Date: 20100317
  Transmission Date: 20101027
  Serious: No
  Sender: FDA-Public Use
  Company Number: DSA_42808_2010

PATIENT
  Sex: Female

DRUGS (13)
  1. XENAZINE [Suspect]
     Indication: DRUG USE FOR UNKNOWN INDICATION
     Dosage: 12.5 MG TID ORAL
     Route: 048
     Dates: start: 20091201, end: 20100309
  2. AMANTADINE HCL [Concomitant]
  3. NIFEDIAC CC [Concomitant]
  4. OMEPRAZOLE [Concomitant]
  5. SLOW RELEASE IRON [Concomitant]
  6. E VITAMIN [Concomitant]
  7. KLONOPIN [Concomitant]
  8. ATENOLOL [Concomitant]
  9. FOLIC ACID [Concomitant]
  10. ASPIRIN [Concomitant]
  11. LOVAZA [Concomitant]
  12. CENTRUM [Concomitant]
  13. C-VITAMIN [Concomitant]

REACTIONS (3)
  - ANXIETY [None]
  - DEPRESSION [None]
  - HYPERHIDROSIS [None]
